FAERS Safety Report 8612815-4 (Version None)
Quarter: 2012Q3

REPORT INFORMATION
  Report Type: 
  Country: None (occurrence: None)
  Receive Date: 20120822
  Receipt Date: 20120110
  Transmission Date: 20120928
  Serious: No
  Sender: FDA-Public Use
  Company Number: US-ASTRAZENECA-2010SE48042

PATIENT
  Age: 57 Year
  Sex: Male

DRUGS (6)
  1. SYMBICORT [Suspect]
     Dosage: 160/4.5 UG AS REQUIRED
     Route: 055
     Dates: start: 20100901
  2. ALBUTEROL [Concomitant]
  3. VENTOLIN [Concomitant]
  4. SYMBICORT [Suspect]
     Dosage: 160/4.5 UG 2 PUFFS TWO TIMES A DAY
     Route: 055
     Dates: start: 20100901
  5. SPIRIVA [Concomitant]
  6. SYMBICORT [Suspect]
     Dosage: 3 PUFFS TWICE DAILY
     Route: 055

REACTIONS (5)
  - DRUG EFFECT DECREASED [None]
  - INCORRECT DOSE ADMINISTERED [None]
  - CHRONIC OBSTRUCTIVE PULMONARY DISEASE [None]
  - DYSPNOEA [None]
  - DRUG DOSE OMISSION [None]
